FAERS Safety Report 14538039 (Version 2)
Quarter: 2020Q1

REPORT INFORMATION
  Report Type: Report from Study
  Country: US (occurrence: US)
  Receive Date: 20180216
  Receipt Date: 20200214
  Transmission Date: 20200409
  Serious: Yes (Hospitalization, Other)
  Sender: FDA-Public Use
  Company Number: US-ROCHE-2068850

PATIENT
  Age: 57 Year
  Sex: Female
  Weight: 80 kg

DRUGS (14)
  1. PREDNISONE. [Concomitant]
     Active Substance: PREDNISONE
  2. LASIX [Concomitant]
     Active Substance: FUROSEMIDE
  3. LORAZEPAM. [Concomitant]
     Active Substance: LORAZEPAM
  4. SEPTRA [Concomitant]
     Active Substance: SULFAMETHOXAZOLE\TRIMETHOPRIM
  5. MYFORTIC [Concomitant]
     Active Substance: MYCOPHENOLATE SODIUM
  6. SERTRALINE [Concomitant]
     Active Substance: SERTRALINE HYDROCHLORIDE
  7. CANDESARTAN. [Concomitant]
     Active Substance: CANDESARTAN
  8. CYCLOSPORINE. [Concomitant]
     Active Substance: CYCLOSPORINE
  9. PANTOPRAZOLE [Concomitant]
     Active Substance: PANTOPRAZOLE
  10. LIPITOR [Concomitant]
     Active Substance: ATORVASTATIN CALCIUM
  11. BUPROPION. [Concomitant]
     Active Substance: BUPROPION
  12. RITUXIMAB. [Suspect]
     Active Substance: RITUXIMAB
     Indication: FOCAL SEGMENTAL GLOMERULOSCLEROSIS
     Dosage: 500 MG/50 ML X2 VIALS, DATE OF LAST DOSE PRIOR TO SAE: 05/SEP/2017
     Route: 042
     Dates: start: 20170817
  13. METOLAZONE. [Concomitant]
     Active Substance: METOLAZONE
  14. POTASSIUM CHLORIDE. [Concomitant]
     Active Substance: POTASSIUM CHLORIDE

REACTIONS (4)
  - Vomiting [Unknown]
  - Infection [Recovered/Resolved with Sequelae]
  - Influenza [Unknown]
  - Upper respiratory tract infection [Recovered/Resolved with Sequelae]

NARRATIVE: CASE EVENT DATE: 20171018
